FAERS Safety Report 17997580 (Version 1)
Quarter: 2020Q3

REPORT INFORMATION
  Report Type: Report from Study
  Country: MX (occurrence: MX)
  Receive Date: 20200708
  Receipt Date: 20200708
  Transmission Date: 20201103
  Serious: Yes (Death, Other)
  Sender: FDA-Public Use
  Company Number: MX-CELGENEUS-MEX-20200701556

PATIENT
  Age: 61 Year
  Sex: Female
  Weight: 47.03 kg

DRUGS (8)
  1. METRONIDAZOLE. [Concomitant]
     Active Substance: METRONIDAZOLE
     Indication: PRODUCT USED FOR UNKNOWN INDICATION
     Route: 065
     Dates: start: 20190913, end: 20190928
  2. AZACITIDINE. [Suspect]
     Active Substance: AZACITIDINE
     Indication: ACUTE MYELOID LEUKAEMIA
     Dosage: UNKNOWN
     Route: 065
     Dates: start: 20190920, end: 20190926
  3. MEROPENEM. [Concomitant]
     Active Substance: MEROPENEM
     Indication: PRODUCT USED FOR UNKNOWN INDICATION
     Route: 065
     Dates: start: 20190922, end: 20190928
  4. CASPOFUNGIN [Concomitant]
     Active Substance: CASPOFUNGIN
     Indication: PRODUCT USED FOR UNKNOWN INDICATION
     Route: 065
     Dates: start: 20190925, end: 20190928
  5. AZACITIDINE. [Suspect]
     Active Substance: AZACITIDINE
     Dosage: UNKNOWN
     Route: 065
  6. VANCOMYCIN [Concomitant]
     Active Substance: VANCOMYCIN
     Indication: PRODUCT USED FOR UNKNOWN INDICATION
     Route: 065
     Dates: start: 20190913, end: 20190928
  7. HYDROCORTISONE. [Concomitant]
     Active Substance: HYDROCORTISONE
     Indication: PRODUCT USED FOR UNKNOWN INDICATION
     Route: 065
     Dates: start: 20190927, end: 20190928
  8. PF?04449913 [Suspect]
     Active Substance: GLASDEGIB
     Indication: ACUTE MYELOID LEUKAEMIA
     Route: 065
     Dates: start: 20190807

REACTIONS (2)
  - Urinary tract infection [Recovered/Resolved with Sequelae]
  - Septic shock [Fatal]

NARRATIVE: CASE EVENT DATE: 20190908
